FAERS Safety Report 13859843 (Version 4)
Quarter: 2017Q4

REPORT INFORMATION
  Report Type: Spontaneous
  Country: NL (occurrence: NL)
  Receive Date: 20170811
  Receipt Date: 20171219
  Transmission Date: 20180320
  Serious: Yes (Hospitalization)
  Sender: FDA-Public Use
  Company Number: NL-TEVA-793545ROM

PATIENT
  Age: 22 Year
  Sex: Female

DRUGS (6)
  1. TACROLIMUS. [Suspect]
     Active Substance: TACROLIMUS
     Indication: IMMUNOSUPPRESSANT DRUG THERAPY
     Route: 065
  2. PREDNISONE. [Suspect]
     Active Substance: PREDNISONE
     Indication: IMMUNOSUPPRESSANT DRUG THERAPY
     Route: 065
  3. ANAKINRA [Suspect]
     Active Substance: ANAKINRA
     Indication: END STAGE RENAL DISEASE
     Dosage: 100MG ON ALTERNATING DAYS; LATER INCREASED TO 100MG 36H THEN 100MG DAILY
  4. ANAKINRA [Suspect]
     Active Substance: ANAKINRA
     Dosage: 100MG DAILY
  5. MYCOPHENOLATE MOFETIL. [Suspect]
     Active Substance: MYCOPHENOLATE MOFETIL
     Indication: IMMUNOSUPPRESSANT DRUG THERAPY
     Route: 065
     Dates: start: 20140903
  6. ANAKINRA [Suspect]
     Active Substance: ANAKINRA
     Dosage: 100MG EACH 36H, INCREASED TO 100MG DAILY

REACTIONS (4)
  - Diarrhoea [Unknown]
  - Norovirus test positive [Unknown]
  - Influenza [Unknown]
  - Epstein-Barr virus infection [Unknown]
